FAERS Safety Report 13880408 (Version 1)
Quarter: 2017Q3

REPORT INFORMATION
  Report Type: Spontaneous
  Country: US (occurrence: None)
  Receive Date: 20170815
  Receipt Date: 20170815
  Transmission Date: 20171127
  Serious: Yes (Death)
  Sender: FDA-Public Use
  Company Number: None

PATIENT
  Age: 85 Year
  Sex: Male

DRUGS (13)
  1. REMERON [Concomitant]
     Active Substance: MIRTAZAPINE
  2. METOPROLOL TARTRATE (LOPRESSOR) [Concomitant]
  3. LUPRON DEPOT [Concomitant]
     Active Substance: LEUPROLIDE ACETATE
  4. TRAMADOL (ULTRAM) [Concomitant]
  5. VITAMIN C/VITAMIN E [Concomitant]
  6. BENAZEPRIL [Concomitant]
     Active Substance: BENAZEPRIL HYDROCHLORIDE
  7. IRON [Concomitant]
     Active Substance: IRON
  8. ZYTIGA [Suspect]
     Active Substance: ABIRATERONE ACETATE
     Dosage: 4 TABLETS
     Route: 048
     Dates: start: 20170207, end: 20170814
  9. ONDANSETRON ODT [Concomitant]
     Active Substance: ONDANSETRON
  10. PREDNISONE. [Concomitant]
     Active Substance: PREDNISONE
  11. AMLODIPINE [Concomitant]
     Active Substance: AMLODIPINE BESYLATE
  12. METRONIDAZOLE (FLAGYL) [Concomitant]
  13. RANIDTIDINE (ZANTAC) [Concomitant]

REACTIONS (1)
  - Death [None]

NARRATIVE: CASE EVENT DATE: 20170814
